FAERS Safety Report 19788213 (Version 2)
Quarter: 2021Q3

REPORT INFORMATION
  Report Type: Spontaneous
  Country: CN (occurrence: CN)
  Receive Date: 20210903
  Receipt Date: 20210909
  Transmission Date: 20211014
  Serious: Yes (Hospitalization, Other)
  Sender: FDA-Public Use
  Company Number: CN-009507513-2109CHN000283

PATIENT
  Age: 46 Year
  Sex: Female

DRUGS (3)
  1. ELUNATE [Suspect]
     Active Substance: FRUQUINTINIB
     Indication: COLON NEOPLASM
     Dosage: 3 MILLIGRAM, QD
     Route: 048
     Dates: start: 20210628, end: 20210718
  2. KEYTRUDA [Suspect]
     Active Substance: PEMBROLIZUMAB
     Indication: COLON CANCER
     Dosage: 200 MILLIGRAM, FREQUENY REPORTED AS QD D1
     Route: 041
     Dates: start: 20210628, end: 20210628
  3. SODIUM CHLORIDE. [Concomitant]
     Active Substance: SODIUM CHLORIDE
     Indication: COLON CANCER
     Dosage: 100 MILLILITER, FREQUENCY REPORTED AS QD D1
     Route: 041
     Dates: start: 20210628, end: 20210628

REACTIONS (3)
  - Haemoglobin decreased [Unknown]
  - Malignant neoplasm progression [Unknown]
  - Platelet count decreased [Unknown]

NARRATIVE: CASE EVENT DATE: 2021
